FAERS Safety Report 10380752 (Version 2)
Quarter: 2014Q3

REPORT INFORMATION
  Report Type: Spontaneous
  Country: AU (occurrence: None)
  Receive Date: 20140808
  Receipt Date: 20140811
  Transmission Date: 20150326
  Serious: Yes (Other)
  Sender: FDA-Public Use
  Company Number: 2014AU006633

PATIENT
  Age: 83 Year
  Sex: Male

DRUGS (7)
  1. ELIGARD [Suspect]
     Active Substance: LEUPROLIDE ACETATE
     Indication: PROSTATE CANCER
     Dates: start: 20140529
  2. FUROSEMIDE. [Concomitant]
     Active Substance: FUROSEMIDE
  3. VITAMIN D (ERGOCALCIFEROL) [Concomitant]
     Active Substance: ERGOCALCIFEROL
  4. SOMAC (PANTOPRAZOLE SODIUM SESQUIHYDRATE) [Concomitant]
  5. OSTEOEZE (GLUCOSAMINE HYDROCHLORIDE) [Concomitant]
  6. WARFARIN (WARFARIN SIDUM) [Concomitant]
  7. ZYLOPRIM (ALLOPURINOL) [Concomitant]

REACTIONS (2)
  - Pollakiuria [None]
  - Pelvic pain [None]

NARRATIVE: CASE EVENT DATE: 20140529
